FAERS Safety Report 25411680 (Version 1)
Quarter: 2025Q2

REPORT INFORMATION
  Report Type: Spontaneous
  Country: RU (occurrence: RU)
  Receive Date: 20250609
  Receipt Date: 20250609
  Transmission Date: 20250716
  Serious: Yes (Other)
  Sender: DAIICHI
  Company Number: RU-AstraZeneca-CH-00881373A

PATIENT
  Sex: Female

DRUGS (1)
  1. TRASTUZUMAB DERUXTECAN [Suspect]
     Active Substance: TRASTUZUMAB DERUXTECAN
     Indication: Product used for unknown indication
     Dosage: UNK UNK, ONCE EVERY 3 WK (5.4 ML/KG)
     Route: 041

REACTIONS (2)
  - Gastrointestinal toxicity [Unknown]
  - Asthenia [Unknown]
